FAERS Safety Report 17864367 (Version 1)
Quarter: 2020Q2

REPORT INFORMATION
  Report Type: Spontaneous
  Country: US (occurrence: US)
  Receive Date: 20200604
  Receipt Date: 20200604
  Transmission Date: 20200714
  Serious: Yes (Death)
  Sender: FDA-Public Use
  Company Number: None

PATIENT
  Age: 64 Year
  Sex: Female

DRUGS (3)
  1. HEPARIN [Suspect]
     Active Substance: HEPARIN SODIUM
     Route: 058
  2. ASPIRIN. [Suspect]
     Active Substance: ASPIRIN
  3. WARFARIN [Suspect]
     Active Substance: WARFARIN
     Route: 048

REACTIONS (8)
  - Haemoglobin decreased [None]
  - General physical health deterioration [None]
  - Gastrointestinal haemorrhage [None]
  - International normalised ratio increased [None]
  - Hypotension [None]
  - Wound haemorrhage [None]
  - Therapy interrupted [None]
  - Mental status changes [None]

NARRATIVE: CASE EVENT DATE: 20200404
